FAERS Safety Report 16381080 (Version 1)
Quarter: 2019Q2

REPORT INFORMATION
  Report Type: Spontaneous
  Country: ES (occurrence: ES)
  Receive Date: 20190602
  Receipt Date: 20190602
  Transmission Date: 20190711
  Serious: Yes (Hospitalization)
  Sender: FDA-Public Use
  Company Number: PHHY2019ES121882

PATIENT
  Age: 69 Year
  Sex: Female

DRUGS (3)
  1. CALCIUM CARBONATE+COLECALCIFEROL [Suspect]
     Active Substance: CALCIUM CARBONATE\CHOLECALCIFEROL
     Indication: TOOTH LOSS
     Dosage: 1 DF, QD (1000 MG CALCIO CARBONATO + 880 UI COLECALCIFEROL SOBRES)
     Route: 048
     Dates: start: 20100429
  2. LINEZOLID. [Suspect]
     Active Substance: LINEZOLID
     Indication: PRODUCT USED FOR UNKNOWN INDICATION
     Dosage: 600 MG, Q12H
     Route: 048
     Dates: start: 20190511, end: 20190513
  3. MESALAZINA [Concomitant]
     Active Substance: MESALAMINE
     Indication: PRODUCT USED FOR UNKNOWN INDICATION
     Dosage: 2400 MG, Q12H
     Route: 048
     Dates: start: 20171014

REACTIONS (1)
  - Diarrhoea [Recovered/Resolved]

NARRATIVE: CASE EVENT DATE: 20190512
